FAERS Safety Report 14062533 (Version 1)
Quarter: 2017Q4

REPORT INFORMATION
  Report Type: Spontaneous
  Country: FR (occurrence: FR)
  Receive Date: 20171009
  Receipt Date: 20171009
  Transmission Date: 20180321
  Serious: Yes (Other)
  Sender: FDA-Public Use
  Company Number: FR-MERCK KGAA-2029313

PATIENT
  Age: 70 Year
  Sex: Female

DRUGS (1)
  1. NOVOTHYROX [Suspect]
     Active Substance: LEVOTHYROXINE SODIUM
     Indication: POST PROCEDURAL HYPOTHYROIDISM
     Dates: start: 201703

REACTIONS (11)
  - Vertigo [None]
  - Fatigue [None]
  - Eye disorder [None]
  - Weight decreased [None]
  - Hyperchlorhydria [None]
  - Depression [None]
  - Hyperhidrosis [None]
  - Chest discomfort [None]
  - Alopecia [None]
  - Pruritus [None]
  - Angina pectoris [None]
